FAERS Safety Report 7529709-8 (Version None)
Quarter: 2011Q2

REPORT INFORMATION
  Report Type: 
  Country: None (occurrence: None)
  Receive Date: 20110531
  Receipt Date: 20110520
  Transmission Date: 20111010
  Serious: Yes (Other)
  Sender: FDA-Public Use
  Company Number: MC201100239

PATIENT

DRUGS (2)
  1. ASPIRIN [Concomitant]
  2. ANGIOMAX [Suspect]
     Indication: CAROTID ARTERY STENT INSERTION
     Dosage: 0.75 MG/KG, BOLUS, INTRAVENOUS,1.75 MG/KG, HR, INTRAVENOUS
     Route: 042

REACTIONS (3)
  - CAROTID ARTERY THROMBOSIS [None]
  - CEREBROVASCULAR ACCIDENT [None]
  - OFF LABEL USE [None]
